FAERS Safety Report 11534097 (Version 3)
Quarter: 2015Q4

REPORT INFORMATION
  Report Type: Spontaneous
  Country: ES (occurrence: ES)
  Receive Date: 20150922
  Receipt Date: 20151015
  Transmission Date: 20160304
  Serious: Yes (Death, Hospitalization)
  Sender: FDA-Public Use
  Company Number: ES-ACCORD-033833

PATIENT
  Age: 75 Year
  Sex: Female

DRUGS (2)
  1. OXALIPLATIN. [Suspect]
     Active Substance: OXALIPLATIN
     Indication: ADENOCARCINOMA OF COLON
     Dosage: IN 2 HR ON DAY 1
  2. CAPECITABINE. [Suspect]
     Active Substance: CAPECITABINE
     Indication: ADENOCARCINOMA OF COLON
     Dosage: EVERY 12 HR ON DAYS 1-14

REACTIONS (21)
  - Encephalopathy [Unknown]
  - Pleural effusion [Unknown]
  - Vomiting [Unknown]
  - Haematotoxicity [Unknown]
  - Hypertensive crisis [Unknown]
  - Toxicity to various agents [Fatal]
  - Cardiac failure [Unknown]
  - Oliguria [Unknown]
  - Pneumonia [Fatal]
  - Gastrointestinal toxicity [Unknown]
  - Febrile neutropenia [Unknown]
  - Quadriparesis [Unknown]
  - Lung adenocarcinoma [Fatal]
  - Respiratory tract infection [Recovering/Resolving]
  - Urinary tract infection [Recovering/Resolving]
  - Atrophy [Unknown]
  - Nodule [Unknown]
  - Bacteraemia [Recovering/Resolving]
  - Glomerulonephritis [Fatal]
  - Nausea [Unknown]
  - Thrombosis [Fatal]
